FAERS Safety Report 5129890-4 (Version None)
Quarter: 2006Q4

REPORT INFORMATION
  Report Type: 
  Country: None (occurrence: None)
  Receive Date: 20061013
  Receipt Date: 20060927
  Transmission Date: 20070319
  Serious: Yes (Life-Threatening, Hospitalization)
  Sender: FDA-Public Use
  Company Number: DSA_28770_2006

PATIENT
  Age: 44 Year
  Sex: Female

DRUGS (2)
  1. TAVOR    /00273201/ [Suspect]
     Dosage: 2 MG ONCE PO
     Route: 048
     Dates: start: 20060925, end: 20060925
  2. TEGRETOL [Suspect]
     Dosage: 4000 MG ONCE PO
     Route: 048
     Dates: start: 20060925, end: 20060925

REACTIONS (5)
  - DIZZINESS [None]
  - MULTIPLE DRUG OVERDOSE INTENTIONAL [None]
  - SUICIDE ATTEMPT [None]
  - SYNCOPE [None]
  - VOMITING [None]
